FAERS Safety Report 10310412 (Version 1)
Quarter: 2014Q3

REPORT INFORMATION
  Report Type: Spontaneous
  Country: US (occurrence: None)
  Receive Date: 20140716
  Receipt Date: 20140716
  Transmission Date: 20150326
  Serious: Yes (Disabling, Other)
  Sender: FDA-Public Use
  Company Number: None

PATIENT
  Age: 48 Year
  Sex: Female
  Weight: 128 kg

DRUGS (1)
  1. DIVALPROEX SODIUM. [Suspect]
     Active Substance: DIVALPROEX SODIUM
     Indication: BIPOLAR DISORDER
     Dosage: BY MOUTH; 2 PILLULES

REACTIONS (6)
  - Gastrointestinal mucosal disorder [None]
  - Abdominal discomfort [None]
  - Vomiting [None]
  - Malaise [None]
  - Activities of daily living impaired [None]
  - Product substitution issue [None]

NARRATIVE: CASE EVENT DATE: 2013
